FAERS Safety Report 5225202-6 (Version None)
Quarter: 2007Q1

REPORT INFORMATION
  Report Type: 
  Country: None (occurrence: None)
  Receive Date: 20070129
  Receipt Date: 20070124
  Transmission Date: 20070707
  Serious: Yes (Death, Hospitalization)
  Sender: FDA-Public Use
  Company Number: 2006SP006610

PATIENT
  Age: 65 Year
  Sex: Female
  Weight: 52 kg

DRUGS (14)
  1. TEMODAL [Suspect]
     Indication: GLIOBLASTOMA
     Dosage: SEE IMAGE
     Route: 048
     Dates: start: 20060818, end: 20060822
  2. TEMODAL [Suspect]
     Indication: GLIOBLASTOMA
     Dosage: SEE IMAGE
     Route: 048
     Dates: start: 20060915, end: 20060919
  3. TEMODAL [Suspect]
     Indication: GLIOBLASTOMA
     Dosage: SEE IMAGE
     Route: 048
     Dates: start: 20061021, end: 20061022
  4. DEPAKENE /00228502/ [Concomitant]
  5. DOGMATYL [Concomitant]
  6. ZYLORIC [Concomitant]
  7. TRANSAMIN [Concomitant]
  8. BLOPRESS [Concomitant]
  9. COMELIAN [Concomitant]
  10. RADIATION THERAPY [Concomitant]
  11. GASTER [Concomitant]
  12. KYTRIL [Concomitant]
  13. PREDNISOLONE [Concomitant]
  14. PREDNISOLONE [Concomitant]

REACTIONS (9)
  - ALANINE AMINOTRANSFERASE INCREASED [None]
  - ASPARTATE AMINOTRANSFERASE INCREASED [None]
  - BLOOD BETA-D-GLUCAN INCREASED [None]
  - DEPRESSED LEVEL OF CONSCIOUSNESS [None]
  - NO THERAPEUTIC RESPONSE [None]
  - PLATELET COUNT DECREASED [None]
  - PNEUMOCYSTIS JIROVECI PNEUMONIA [None]
  - RESPIRATORY FAILURE [None]
  - WHITE BLOOD CELL COUNT DECREASED [None]
